FAERS Safety Report 13726427 (Version 2)
Quarter: 2017Q3

REPORT INFORMATION
  Report Type: Spontaneous
  Country: US (occurrence: US)
  Receive Date: 20170706
  Receipt Date: 20170721
  Transmission Date: 20171127
  Serious: No
  Sender: FDA-Public Use
  Company Number: US-PFIZER INC-2017290816

PATIENT
  Age: 56 Year
  Sex: Male

DRUGS (2)
  1. ALPRAZOLAM. [Suspect]
     Active Substance: ALPRAZOLAM
     Indication: TINNITUS
     Dosage: 0.5MG IN THE MORNING AND AT NIGHT
     Dates: start: 2012
  2. CLONAZEPAM. [Suspect]
     Active Substance: CLONAZEPAM
     Indication: TINNITUS
     Dosage: 0.5MG IN THE MORNING AND AT NIGHT
     Dates: start: 2012

REACTIONS (3)
  - Insomnia [Unknown]
  - Drug ineffective [Unknown]
  - Product use in unapproved indication [Unknown]

NARRATIVE: CASE EVENT DATE: 2012
